FAERS Safety Report 7457839-8 (Version None)
Quarter: 2011Q2

REPORT INFORMATION
  Report Type: 
  Country: None (occurrence: None)
  Receive Date: 20110504
  Receipt Date: 20110421
  Transmission Date: 20111010
  Serious: No
  Sender: FDA-Public Use
  Company Number: US-B.I. PHARMACEUTICALS,INC./RIDGEFIELD-2011-BP-03111BP

PATIENT
  Age: 77 Year
  Sex: Male

DRUGS (2)
  1. PRADAXA [Suspect]
     Indication: ATRIAL FIBRILLATION
     Dosage: 300 MG
     Route: 048
     Dates: start: 20110127
  2. PRADAXA [Suspect]
     Indication: UNEVALUABLE EVENT

REACTIONS (4)
  - EPISTAXIS [None]
  - BLOOD PRESSURE INCREASED [None]
  - MOUTH HAEMORRHAGE [None]
  - DIZZINESS [None]
